FAERS Safety Report 24038774 (Version 1)
Quarter: 2024Q3

REPORT INFORMATION
  Report Type: Spontaneous
  Country: GB (occurrence: GB)
  Receive Date: 20240702
  Receipt Date: 20240702
  Transmission Date: 20241016
  Serious: Yes (Hospitalization)
  Sender: BIOVITRUM
  Company Number: GB-BIOVITRUM-2024-GB-009030

PATIENT
  Age: 72 Year
  Sex: Female

DRUGS (1)
  1. KINERET [Suspect]
     Active Substance: ANAKINRA
     Indication: Pyrexia
     Dosage: KINERET 100MG/0.67ML SOLUTION FOR INJECTION PRE-FILLED SYRINGES 50 MG ONCE DAILY
     Route: 058

REACTIONS (5)
  - Limb injury [Recovered/Resolved]
  - Fall [Recovered/Resolved]
  - Gait inability [Recovered/Resolved]
  - Malaise [Recovered/Resolved]
  - Off label use [Not Recovered/Not Resolved]
